FAERS Safety Report 9098021 (Version 1)
Quarter: 2013Q1

REPORT INFORMATION
  Report Type: Spontaneous
  Country: NL (occurrence: NL)
  Receive Date: 20130212
  Receipt Date: 20130212
  Transmission Date: 20140127
  Serious: Yes (Other)
  Sender: FDA-Public Use
  Company Number: NL-JNJFOC-20130116114

PATIENT
  Age: 41 Year
  Sex: Female
  Weight: 60 kg

DRUGS (1)
  1. HALDOL [Suspect]
     Indication: PSYCHOTIC DISORDER
     Dosage: 10 MG * 8 TABLETS
     Route: 048
     Dates: start: 20130119

REACTIONS (3)
  - Gait disturbance [Not Recovered/Not Resolved]
  - Fluid retention [Not Recovered/Not Resolved]
  - Dysarthria [Not Recovered/Not Resolved]
